FAERS Safety Report 4363741-0 (Version None)
Quarter: 2004Q2

REPORT INFORMATION
  Report Type: 
  Country: None (occurrence: None)
  Receive Date: 20040520
  Receipt Date: 20040520
  Transmission Date: 20050107
  Serious: Yes (Hospitalization)
  Sender: FDA-Public Use
  Company Number: None

PATIENT
  Age: 70 Year
  Sex: Male
  Weight: 75 kg

DRUGS (3)
  1. IRINOTECAN 65 MG/M2 [Suspect]
     Indication: GASTRIC CANCER
     Dosage: 137 MG
     Dates: start: 20040315, end: 20040322
  2. CISPLATIN [Suspect]
     Indication: GASTRIC CANCER
     Dosage: 63 MG XT, IV
     Route: 042
     Dates: start: 20040315, end: 20040503
  3. IRINOTECAN 50 MG/M2 [Suspect]
     Indication: GASTRIC CANCER
     Dosage: 105 MG, XT, IV
     Route: 042
     Dates: start: 20040405, end: 20040503

REACTIONS (2)
  - ANOREXIA [None]
  - DEEP VEIN THROMBOSIS [None]
